FAERS Safety Report 8335232-3 (Version None)
Quarter: 2012Q2

REPORT INFORMATION
  Report Type: 
  Country: None (occurrence: None)
  Receive Date: 20120503
  Receipt Date: 20120420
  Transmission Date: 20120825
  Serious: Yes (Death, Hospitalization, Other)
  Sender: FDA-Public Use
  Company Number: US-MYLANLABS-2009AC000314

PATIENT
  Age: 70 Year
  Sex: Male
  Weight: 72.58 kg

DRUGS (60)
  1. OXYCONTIN [Concomitant]
  2. CALCIUM CARBONATE [Concomitant]
  3. PROTONIX [Concomitant]
  4. DYAZIDE [Concomitant]
  5. HYDROCODONE BITARTRATE AND ACETAMINOPHEN [Concomitant]
  6. FENTANYL CITRATE [Concomitant]
  7. FOLIC ACID [Concomitant]
  8. MILK OF MAGNESIA TAB [Concomitant]
     Dosage: 1 OUNCE
     Route: 048
  9. LORTAB [Concomitant]
     Dosage: PRN
     Route: 048
  10. TOPROL-XL [Concomitant]
  11. INDOCIN [Concomitant]
  12. NEXIUM [Concomitant]
     Route: 048
  13. SULFASALAZINE [Concomitant]
  14. LEVAQUIN [Concomitant]
  15. LASIX [Concomitant]
     Route: 048
  16. METOPROLOL TARTRATE [Concomitant]
     Route: 048
  17. COLACE [Concomitant]
     Dosage: PRN
     Route: 048
  18. DIGOXIN [Suspect]
     Route: 048
  19. SURFAK [Concomitant]
  20. LORAZEPAM [Concomitant]
  21. POTASSIUM CHLORIDE [Concomitant]
     Route: 048
  22. FLAGYL [Concomitant]
     Route: 042
  23. HYDROCHLOROTHIAZIDE [Concomitant]
  24. ASPIRIN [Concomitant]
  25. NORVASC [Concomitant]
  26. SULFAMETHOXAZOLE + TRIMETHOPRIM [Concomitant]
  27. AMIODARONE HCL [Concomitant]
     Route: 048
  28. LIPITOR [Concomitant]
     Route: 048
  29. PLAVIX [Concomitant]
     Route: 048
  30. TYLENOL (CAPLET) [Concomitant]
     Dosage: PRN
     Route: 048
  31. MORPHINE SULFATE [Concomitant]
     Route: 042
  32. DESONIDE [Concomitant]
  33. TRIAMZIDE [Concomitant]
  34. NYSTATIN [Concomitant]
  35. VITAMIN B-12 [Concomitant]
     Route: 030
  36. NITROGLYCERIN [Concomitant]
     Route: 060
  37. PERCOCET [Concomitant]
  38. PREDNISONE TAB [Concomitant]
     Route: 048
  39. COLCHICINE [Concomitant]
  40. CEPHALEXIN [Concomitant]
  41. PROPOXYPHENE HYDROCHLORIDE [Concomitant]
  42. OXYCODONE HCL AND ACETAMINOPHEN [Concomitant]
  43. BENADRYL [Concomitant]
     Dosage: PRN
     Route: 048
  44. BENADRYL [Concomitant]
  45. TRIAMCINOLONE [Concomitant]
  46. CEPHADROXIL [Concomitant]
  47. FEXOFENADINE [Concomitant]
  48. FUROSEMIDE [Concomitant]
  49. PLAVIX [Concomitant]
  50. DIGOXIN /00545901/ [Concomitant]
     Route: 048
  51. GUAIFENESIN [Concomitant]
     Dosage: TWO TABLETS BID
     Route: 048
  52. ARTIFICIAL TEARS /00445101/ [Concomitant]
     Dosage: PRN
  53. CENTRUM [Concomitant]
     Route: 048
  54. GUAIFENEX /00048001/ [Concomitant]
  55. METHOTREXATE [Concomitant]
  56. TESTOSTERONE [Concomitant]
  57. LISINOPRIL [Concomitant]
  58. PERIACTIN [Concomitant]
     Route: 048
  59. DURAGESIC-100 [Concomitant]
     Route: 062
  60. MYLANTA [Concomitant]

REACTIONS (36)
  - GANGRENE [None]
  - CYANOSIS [None]
  - BLOOD PRESSURE INCREASED [None]
  - URINARY TRACT INFECTION [None]
  - INJECTION [None]
  - MUSCULOSKELETAL DISCOMFORT [None]
  - RENAL FAILURE [None]
  - ISCHAEMIC CARDIOMYOPATHY [None]
  - PNEUMONIA [None]
  - LUMBAR SPINAL STENOSIS [None]
  - SCLERAL DISORDER [None]
  - NECROSIS [None]
  - CHRONIC OBSTRUCTIVE PULMONARY DISEASE [None]
  - OSTEOARTHRITIS [None]
  - HYPERTENSION [None]
  - BREATH SOUNDS ABNORMAL [None]
  - PAIN [None]
  - RHEUMATOID ARTHRITIS [None]
  - MUSCULOSKELETAL STIFFNESS [None]
  - GOUT [None]
  - SPINAL COLUMN STENOSIS [None]
  - ANXIETY [None]
  - VENTRICULAR TACHYCARDIA [None]
  - PERIPHERAL VASCULAR DISORDER [None]
  - CHILLS [None]
  - JOINT RANGE OF MOTION DECREASED [None]
  - DEATH [None]
  - ULCER [None]
  - HIP ARTHROPLASTY [None]
  - MYOCARDIAL INFARCTION [None]
  - OEDEMA PERIPHERAL [None]
  - BACK PAIN [None]
  - CLOSTRIDIUM DIFFICILE COLITIS [None]
  - CORONARY ARTERY DISEASE [None]
  - SOMNOLENCE [None]
  - GASTROOESOPHAGEAL REFLUX DISEASE [None]
